FAERS Safety Report 13975471 (Version 1)
Quarter: 2017Q3

REPORT INFORMATION
  Report Type: Spontaneous
  Country: US (occurrence: US)
  Receive Date: 20170915
  Receipt Date: 20170915
  Transmission Date: 20171128
  Serious: No
  Sender: FDA-Public Use
  Company Number: US-BAYER-2017-177419

PATIENT
  Age: 70 Year
  Sex: Female
  Weight: 68 kg

DRUGS (1)
  1. MIRALAX [Suspect]
     Active Substance: POLYETHYLENE GLYCOL 3350
     Indication: GASTROINTESTINAL DISORDER
     Dosage: 1 DF, 1 CAPFUL DOSE
     Route: 048
     Dates: start: 2016, end: 20170912

REACTIONS (1)
  - Expired product administered [Unknown]

NARRATIVE: CASE EVENT DATE: 20170912
